FAERS Safety Report 7519245-7 (Version None)
Quarter: 2011Q2

REPORT INFORMATION
  Report Type: 
  Country: None (occurrence: None)
  Receive Date: 20110523
  Receipt Date: 20110516
  Transmission Date: 20111010
  Serious: Yes (Hospitalization)
  Sender: FDA-Public Use
  Company Number: WAES 1105USA02409

PATIENT
  Sex: Female

DRUGS (2)
  1. LOPINAVIR/RITONAVIR [Suspect]
     Indication: HIV INFECTION
     Dates: start: 20110317
  2. TAB RALTEGRAVIR POTASSIUM [Suspect]
     Indication: HIV INFECTION
     Dosage: PO
     Route: 048
     Dates: start: 20110317

REACTIONS (7)
  - CANDIDIASIS [None]
  - DECUBITUS ULCER [None]
  - DEHYDRATION [None]
  - STOMATITIS [None]
  - LIPODYSTROPHY ACQUIRED [None]
  - DIARRHOEA [None]
  - OEDEMA PERIPHERAL [None]
